FAERS Safety Report 12519259 (Version 1)
Quarter: 2016Q3

REPORT INFORMATION
  Report Type: Other
  Country: DE (occurrence: DE)
  Receive Date: 20160701
  Receipt Date: 20160701
  Transmission Date: 20161109
  Serious: No
  Sender: FDA-Public Use
  Company Number: DE-LUPIN PHARMACEUTICALS INC.-E2B_00004856

PATIENT
  Age: 74 Year
  Sex: Male
  Weight: 69 kg

DRUGS (1)
  1. SIMVASTATIN. [Suspect]
     Active Substance: SIMVASTATIN
     Indication: LIPID METABOLISM DISORDER
     Dosage: 20 MG
     Route: 048
     Dates: start: 201407, end: 201512

REACTIONS (1)
  - Muscle spasms [Recovered/Resolved]

NARRATIVE: CASE EVENT DATE: 201501
